FAERS Safety Report 17181310 (Version 1)
Quarter: 2019Q4

REPORT INFORMATION
  Report Type: Spontaneous
  Country: SE (occurrence: SE)
  Receive Date: 20191220
  Receipt Date: 20191220
  Transmission Date: 20200122
  Serious: Yes (Hospitalization)
  Sender: FDA-Public Use
  Company Number: SE-TEVA-2019-SE-1154014

PATIENT
  Age: 23 Year
  Sex: Female

DRUGS (5)
  1. RISPERDAL [Suspect]
     Active Substance: RISPERIDONE
     Dosage: 10 TR ON 0.5 MG, UNIT DOSE : 5 MILLIGRAM
     Route: 048
     Dates: start: 20181123, end: 20181123
  2. LYRICA [Suspect]
     Active Substance: PREGABALIN
     Dosage: 14 TR IN 150 MG, UNIT DOSE : 2100 MILLIGRAM
     Dates: start: 20181123, end: 20181123
  3. STESOLID [Suspect]
     Active Substance: DIAZEPAM
     Dosage: 5 MG 25 MG
     Route: 048
     Dates: start: 20181123, end: 20181123
  4. ZOPICLONE [Suspect]
     Active Substance: ZOPICLONE
     Dosage: 10 TABLETS OF 7.5 MG
     Route: 048
     Dates: start: 20181123, end: 20181123
  5. PROPAVAN [Suspect]
     Active Substance: PROPIOMAZINE
     Dosage: 80 TABLETS PER 25 MG, UNIT DOSE : 2000 MILLIGRAM
     Route: 048
     Dates: start: 20181123, end: 20181123

REACTIONS (3)
  - Intentional self-injury [Unknown]
  - Intentional overdose [Unknown]
  - Somnolence [Unknown]

NARRATIVE: CASE EVENT DATE: 20181123
